FAERS Safety Report 25888417 (Version 1)
Quarter: 2025Q4

REPORT INFORMATION
  Report Type: Spontaneous
  Country: US (occurrence: US)
  Receive Date: 20251007
  Receipt Date: 20251007
  Transmission Date: 20260117
  Serious: No
  Sender: BAUSCH AND LOMB
  Company Number: US-BAUSCHBL-2025BNL029539

PATIENT
  Sex: Female

DRUGS (5)
  1. KETOTIFEN [Suspect]
     Active Substance: KETOTIFEN
     Indication: Mast cell activation syndrome
  2. CANNABIS SATIVA SUBSP. INDICA TOP [Suspect]
     Active Substance: CANNABIS SATIVA SUBSP. INDICA TOP
     Indication: Mast cell activation syndrome
  3. MONTELUKAST [Suspect]
     Active Substance: MONTELUKAST
     Indication: Mast cell activation syndrome
  4. LORAZEPAM [Suspect]
     Active Substance: LORAZEPAM
     Indication: Mast cell activation syndrome
     Dosage: STABLE LOW DOSING, NO SIGN OF ADDICTION
  5. CROMOLYN SODIUM [Suspect]
     Active Substance: CROMOLYN SODIUM
     Indication: Mast cell activation syndrome
     Dosage: STABLE LOW DOSING, NO SIGN OF ADDICTION
     Route: 045

REACTIONS (1)
  - Therapy partial responder [Unknown]
